FAERS Safety Report 4718944-X (Version None)
Quarter: 2005Q3

REPORT INFORMATION
  Report Type: 
  Country: None (occurrence: None)
  Receive Date: 20050720
  Receipt Date: 20050606
  Transmission Date: 20060218
  Serious: Yes (Hospitalization)
  Sender: FDA-Public Use
  Company Number: PAR_0133_2005

PATIENT
  Age: 93 Year
  Sex: Female

DRUGS (3)
  1. CAPOTEN [Suspect]
     Indication: ESSENTIAL HYPERTENSION
     Dosage: 25 MG UNK PO
     Route: 048
     Dates: start: 20040901, end: 20040921
  2. SEGURIL [Suspect]
     Indication: MYOCARDIAL ISCHAEMIA
     Dosage: 40 MG QDAY PO
     Route: 048
     Dates: start: 20040918, end: 20040921
  3. MASDIL [Suspect]
     Indication: ATRIAL FIBRILLATION
     Dosage: 120 MG BID PO
     Route: 048

REACTIONS (2)
  - DRUG INTERACTION [None]
  - RENAL FAILURE ACUTE [None]
